FAERS Safety Report 5365977-9 (Version None)
Quarter: 2007Q2

REPORT INFORMATION
  Report Type: 
  Country: None (occurrence: None)
  Receive Date: 20070611
  Receipt Date: 20070326
  Transmission Date: 20071010
  Serious: Yes (Death, Other)
  Sender: FDA-Public Use
  Company Number: USA-2007-0026900

PATIENT
  Sex: Male

DRUGS (1)
  1. OXYCONTIN [Suspect]
     Indication: BACK PAIN

REACTIONS (2)
  - DRUG ABUSER [None]
  - OVERDOSE [None]
